FAERS Safety Report 7991635-8 (Version None)
Quarter: 2011Q4

REPORT INFORMATION
  Report Type: 
  Country: None (occurrence: None)
  Receive Date: 20111219
  Receipt Date: 20111205
  Transmission Date: 20120403
  Serious: Yes (Death)
  Sender: FDA-Public Use
  Company Number: PHHY2011US109790

PATIENT
  Age: 50 Year
  Sex: Male

DRUGS (5)
  1. BRAKE FLUID [Suspect]
  2. ETHYLENE GLYCOL [Suspect]
  3. LUBRICATING OIL [Suspect]
  4. CLOZAPINE [Suspect]
  5. GABAPENTIN [Suspect]

REACTIONS (1)
  - COMPLETED SUICIDE [None]
